FAERS Safety Report 5430408-7 (Version None)
Quarter: 2007Q3

REPORT INFORMATION
  Report Type: 
  Country: None (occurrence: None)
  Receive Date: 20070828
  Receipt Date: 20070820
  Transmission Date: 20080115
  Serious: Yes (Hospitalization, Other)
  Sender: FDA-Public Use
  Company Number: 163-21880-07071590

PATIENT
  Age: 67 Year
  Sex: Male

DRUGS (2)
  1. REVLIMID [Suspect]
     Indication: MULTIPLE MYELOMA
     Dosage: 5 MG, QOD X 21D, ORAL; 5 MG, QD X 21D, ORAL; 5 MG, QD X 21D, ORAL
     Route: 048
     Dates: start: 20070523, end: 20070601
  2. REVLIMID [Suspect]
     Indication: MULTIPLE MYELOMA
     Dosage: 5 MG, QOD X 21D, ORAL; 5 MG, QD X 21D, ORAL; 5 MG, QD X 21D, ORAL
     Route: 048
     Dates: start: 20070618

REACTIONS (2)
  - BLOOD DISORDER [None]
  - NEPHROLITHIASIS [None]
